FAERS Safety Report 15762767 (Version 1)
Quarter: 2018Q4

REPORT INFORMATION
  Report Type: Spontaneous
  Country: TR (occurrence: TR)
  Receive Date: 20181226
  Receipt Date: 20181226
  Transmission Date: 20190205
  Serious: Yes (Other)
  Sender: FDA-Public Use
  Company Number: PHHY2018TR192069

PATIENT
  Age: 12 Month
  Sex: Female

DRUGS (2)
  1. FILGRASTIM [Suspect]
     Active Substance: FILGRASTIM
     Indication: NEUTROPHIL COUNT DECREASED
     Dosage: 10 MCG/KG EVERY OTHER DAY
     Route: 065
  2. FILGRASTIM [Suspect]
     Active Substance: FILGRASTIM
     Dosage: 20 MCG/KG
     Route: 065

REACTIONS (3)
  - Interstitial lung disease [Recovering/Resolving]
  - Drug ineffective [Unknown]
  - Infection [Unknown]
